FAERS Safety Report 7496888-0 (Version None)
Quarter: 2011Q2

REPORT INFORMATION
  Report Type: 
  Country: None (occurrence: None)
  Receive Date: 20110523
  Receipt Date: 20110518
  Transmission Date: 20111010
  Serious: Yes (Life-Threatening, Hospitalization)
  Sender: FDA-Public Use
  Company Number: JP-EISAI INC-E2090-01560-SPO-JP

PATIENT
  Age: 86 Year
  Sex: Female

DRUGS (8)
  1. ZONISAMIDE [Suspect]
     Indication: EPILEPSY
     Route: 048
     Dates: start: 20110101, end: 20110218
  2. ZONISAMIDE [Suspect]
     Route: 048
     Dates: start: 20110302
  3. ALEVIATIN [Suspect]
     Route: 048
     Dates: start: 20110302
  4. LANSOPRAZOLE [Suspect]
     Route: 048
     Dates: start: 20110201, end: 20110218
  5. SODIUM CHLORIDE [Concomitant]
  6. ALEVIATIN [Suspect]
     Route: 048
     Dates: start: 20110101, end: 20110218
  7. DIGOSIN [Concomitant]
     Route: 048
  8. AMLODIPINE [Concomitant]
     Route: 048

REACTIONS (2)
  - SEPSIS [None]
  - AGRANULOCYTOSIS [None]
